FAERS Safety Report 24308128 (Version 2)
Quarter: 2024Q3

REPORT INFORMATION
  Report Type: Report from Study
  Country: US (occurrence: US)
  Receive Date: 20240911
  Receipt Date: 20240919
  Transmission Date: 20241016
  Serious: Yes (Other)
  Sender: ROCHE
  Company Number: US-ROCHE-10000073364

PATIENT
  Age: 62 Year
  Sex: Male

DRUGS (13)
  1. ACTEMRA [Suspect]
     Active Substance: TOCILIZUMAB
     Indication: Rheumatoid arthritis
     Route: 065
     Dates: start: 20240906
  2. ACTEMRA [Suspect]
     Active Substance: TOCILIZUMAB
     Indication: Rheumatoid arthritis
     Dosage: 162 MG AUTO PEN
     Route: 065
  3. SEROQUEL [Concomitant]
     Active Substance: QUETIAPINE FUMARATE
  4. CELEBREX [Concomitant]
     Active Substance: CELECOXIB
  5. ADDERALL [Concomitant]
     Active Substance: AMPHETAMINE ASPARTATE\AMPHETAMINE SULFATE\DEXTROAMPHETAMINE SACCHARATE\DEXTROAMPHETAMINE SULFATE
  6. PRAMIPEXOLE [Concomitant]
     Active Substance: PRAMIPEXOLE\PRAMIPEXOLE DIHYDROCHLORIDE
  7. CARBIDOPA LEVODOPA [Concomitant]
     Active Substance: CARBIDOPA\LEVODOPA
  8. METHOTREXATE [Concomitant]
     Active Substance: METHOTREXATE
  9. ADALIMUMAB [Concomitant]
     Active Substance: ADALIMUMAB
  10. METOPROLOL [Concomitant]
     Active Substance: METOPROLOL
  11. OMEPRAZOLE [Concomitant]
     Active Substance: OMEPRAZOLE
  12. ATORVASTATIN [Concomitant]
     Active Substance: ATORVASTATIN
  13. TAMSULOSIN [Concomitant]
     Active Substance: TAMSULOSIN

REACTIONS (1)
  - Parkinson^s disease [Unknown]
